FAERS Safety Report 8464923-9 (Version None)
Quarter: 2012Q2

REPORT INFORMATION
  Report Type: 
  Country: None (occurrence: None)
  Receive Date: 20120626
  Receipt Date: 20120618
  Transmission Date: 20120825
  Serious: Yes (Hospitalization, Other)
  Sender: FDA-Public Use
  Company Number: US-BAYER-2011-110615

PATIENT
  Age: 35 Year
  Sex: Female
  Weight: 66 kg

DRUGS (25)
  1. RESPIRATORY SYSTEM [Concomitant]
     Dosage: 5 MG, QD
  2. YASMIN [Suspect]
     Indication: CONTRACEPTION
     Dosage: UNK
     Route: 048
     Dates: start: 20030201, end: 20070401
  3. YASMIN [Suspect]
     Indication: MENSTRUAL CYCLE MANAGEMENT
  4. ETODOLAC [Concomitant]
     Dosage: 400 MG, TID, PRN
     Dates: start: 20070430
  5. SILVER SULFADIAZINE [Concomitant]
     Dosage: 50 MG, UNK
     Dates: start: 20070516
  6. NITROFURANT MACRO [Concomitant]
     Dosage: 100 MG, UNK
     Dates: start: 20070616, end: 20070627
  7. YASMIN [Suspect]
     Indication: ACNE
  8. YASMIN [Suspect]
     Indication: PREMENSTRUAL SYNDROME
  9. INDOMETHACIN [Concomitant]
     Dosage: 50 MG, TID
     Dates: start: 20070417, end: 20070703
  10. METHYLPREDNISOLONE [Concomitant]
     Dosage: 4 MG, UNK
     Dates: start: 20070516
  11. PROMETHAZINE W/ CODEINE [Concomitant]
     Dosage: UNK
     Dates: start: 20070606
  12. SINGULAIR [Concomitant]
     Indication: ASTHMA
     Dosage: UNK UNK, PRN
  13. QVAR 40 [Concomitant]
     Dosage: 2 PUFFS BID
  14. HYDROCHLOROTHIAZIDE [Concomitant]
     Dosage: 25 MG, UNK
     Dates: start: 20070430
  15. EFFEXOR [Concomitant]
     Indication: DEPRESSION
     Dosage: 1 TABLET QD
  16. TOPROL-XL [Concomitant]
     Dosage: 100 MG, UNK
  17. HYDROCODONE BITARTRATE AND ACETAMINOPHEN [Concomitant]
     Indication: PAIN
     Dosage: 5MG/500MG 1-2 TABLS Q6 HRS PRN
     Dates: start: 20070406
  18. ALPRAZOLAM [Concomitant]
     Dosage: 1 MG, UNK
     Dates: start: 20070410, end: 20071002
  19. CYCLOBENZAPRINE [Concomitant]
     Indication: MUSCLE SPASMS
     Dosage: 10 MG, TID, PRN
     Dates: start: 20070427
  20. OXYCODONE HCL [Concomitant]
     Dosage: 10 MG, UNK
     Dates: start: 20070607
  21. TAMBOUR [Concomitant]
     Dosage: UNK
     Dates: start: 20070615
  22. FLECAINIDE ACETATE [Concomitant]
     Dosage: 100 MG, BID
     Dates: start: 20070404
  23. MOMETASONE FUROATE [Concomitant]
     Dosage: 0.1 %, UNK
     Dates: start: 20070406
  24. PROPOXYPHENE NAPSYLATE [Concomitant]
     Dosage: 1 Q 4-6 HRS PRN
     Dates: start: 20070430
  25. CARDIZEM [Concomitant]
     Dosage: 240 MG, QD

REACTIONS (8)
  - ANXIETY [None]
  - PULMONARY EMBOLISM [None]
  - DEEP VEIN THROMBOSIS [None]
  - PHLEBITIS [None]
  - GENERAL PHYSICAL HEALTH DETERIORATION [None]
  - EMOTIONAL DISTRESS [None]
  - FEAR [None]
  - CHEST PAIN [None]
